FAERS Safety Report 25811030 (Version 1)
Quarter: 2025Q3

REPORT INFORMATION
  Report Type: Spontaneous
  Country: GB (occurrence: GB)
  Receive Date: 20250917
  Receipt Date: 20250917
  Transmission Date: 20251021
  Serious: Yes (Other)
  Sender: REGENERON
  Company Number: GB-SA-2025SA233084

PATIENT
  Age: 17 Year
  Sex: Female

DRUGS (1)
  1. PRALUENT [Suspect]
     Active Substance: ALIROCUMAB
     Indication: Hypercholesterolaemia
     Dosage: 300 MG, Q4W, SOLUTION FOR INJECTION
     Route: 058
     Dates: start: 202508

REACTIONS (2)
  - Syncope [Unknown]
  - Off label use [Unknown]

NARRATIVE: CASE EVENT DATE: 20250801
